FAERS Safety Report 6345168-5 (Version None)
Quarter: 2009Q3

REPORT INFORMATION
  Report Type: 
  Country: None (occurrence: None)
  Receive Date: 20090909
  Receipt Date: 20090903
  Transmission Date: 20100115
  Serious: No
  Sender: FDA-Public Use
  Company Number: GB-JNJFOC-20090902104

PATIENT

DRUGS (1)
  1. DURAGESIC-100 [Suspect]
     Indication: ANALGESIA
     Route: 062

REACTIONS (4)
  - ADVERSE DRUG REACTION [None]
  - APPLICATION SITE ERYTHEMA [None]
  - INCORRECT DRUG ADMINISTRATION DURATION [None]
  - WRONG TECHNIQUE IN DRUG USAGE PROCESS [None]
